FAERS Safety Report 5154162-1 (Version None)
Quarter: 2006Q4

REPORT INFORMATION
  Report Type: 
  Country: None (occurrence: None)
  Receive Date: 20061120
  Receipt Date: 20061110
  Transmission Date: 20070319
  Serious: Yes (Death)
  Sender: FDA-Public Use
  Company Number: GB-AMGEN-UK199963

PATIENT

DRUGS (5)
  1. NEULASTA [Suspect]
     Indication: CHEMOTHERAPY
     Route: 065
  2. BLEOMYCIN [Concomitant]
     Route: 065
  3. DOXORUBICIN HYDROCHLORIDE [Concomitant]
     Route: 065
  4. VINBLASTINE [Concomitant]
     Route: 065
  5. DACARBAZINE [Concomitant]
     Route: 065

REACTIONS (1)
  - PULMONARY FIBROSIS [None]
